FAERS Safety Report 11717813 (Version 2)
Quarter: 2017Q3

REPORT INFORMATION
  Report Type: Spontaneous
  Country: CN (occurrence: CN)
  Receive Date: 20151110
  Receipt Date: 20170727
  Transmission Date: 20171127
  Serious: Yes (Life-Threatening, Hospitalization, Other)
  Sender: FDA-Public Use
  Company Number: CN-MACLEODS PHARMACEUTICALS US LTD-MAC2015002146

PATIENT

DRUGS (1)
  1. CLOPIDOGREL [Suspect]
     Active Substance: CLOPIDOGREL BISULFATE
     Indication: PRODUCT USED FOR UNKNOWN INDICATION
     Dosage: UNK
     Route: 065

REACTIONS (11)
  - Syncope [Recovered/Resolved]
  - Kounis syndrome [Recovered/Resolved]
  - Rash erythematous [Recovered/Resolved]
  - Electrocardiogram ST segment elevation [Recovered/Resolved]
  - Hyperhidrosis [Recovered/Resolved]
  - Loss of consciousness [Recovered/Resolved]
  - Coronary artery occlusion [Recovered/Resolved]
  - Pruritus generalised [Recovered/Resolved]
  - Atrioventricular block [Recovered/Resolved]
  - Drug hypersensitivity [Recovered/Resolved]
  - Coronary artery stenosis [Recovered/Resolved]
